FAERS Safety Report 8166082-9 (Version None)
Quarter: 2012Q1

REPORT INFORMATION
  Report Type: 
  Country: None (occurrence: None)
  Receive Date: 20120227
  Receipt Date: 20110328
  Transmission Date: 20120608
  Serious: No
  Sender: FDA-Public Use
  Company Number: US-MYLANLABS-2011S1005440

PATIENT
  Age: 17 Year
  Sex: Male
  Weight: 54.5 kg

DRUGS (5)
  1. ULTRASE /00150201/ [Concomitant]
  2. ZANTAC [Concomitant]
  3. AMNESTEEM [Suspect]
     Indication: ACNE
     Route: 048
     Dates: start: 20101117, end: 20110107
  4. ADEKS /01439301/ [Concomitant]
  5. PULMOZYME [Concomitant]

REACTIONS (2)
  - ADVERSE EVENT [None]
  - PNEUMONIA [None]
